FAERS Safety Report 9157407 (Version 2)
Quarter: 2013Q1

REPORT INFORMATION
  Report Type: Spontaneous
  Country: IT (occurrence: None)
  Receive Date: 20130211
  Receipt Date: 20130307
  Transmission Date: 20140127
  Serious: Yes (Hospitalization)
  Sender: FDA-Public Use
  Company Number: 2013AP002186

PATIENT
  Age: 13 Year
  Sex: Female

DRUGS (8)
  1. PANTOPRAZOLE (PANTOPRAZOLE) [Suspect]
     Indication: PRODUCT USED FOR UNKNOWN INDICATION
     Dates: start: 20130102
  2. PANTOPRAZOLE (PANTOPRAZOLE) [Suspect]
     Indication: INTENTIONAL SELF-INJURY
     Dates: start: 20130102
  3. ALPRAZOLAM (ALPRAZOLAM) [Suspect]
     Indication: PRODUCT USED FOR UNKNOWN INDICATION
     Dates: start: 20130102
  4. ITRACONAZOLE [Suspect]
     Indication: PRODUCT USED FOR UNKNOWN INDICATION
     Dates: start: 20130102
  5. ITRACONAZOLE [Suspect]
     Dates: start: 20130102
  6. MORNIFLUMATE [Suspect]
     Indication: INTENTIONAL SELF-INJURY
     Dates: start: 20130102
  7. AMITRIPTYLINE HYDROCHLORIDE [Suspect]
     Indication: INTENTIONAL SELF-INJURY
     Dates: start: 20130102
  8. ESOMEPRAZOLE [Suspect]
     Indication: INTENTIONAL SELF-INJURY
     Dates: start: 20130102

REACTIONS (3)
  - Aphasia [None]
  - Sopor [None]
  - Drug abuse [None]
